FAERS Safety Report 21156429 (Version 1)
Quarter: 2022Q3

REPORT INFORMATION
  Report Type: Spontaneous
  Country: CA (occurrence: CA)
  Receive Date: 20220801
  Receipt Date: 20220801
  Transmission Date: 20221026
  Serious: Yes (Other)
  Sender: FDA-Public Use
  Company Number: CA-SAMSUNG BIOEPIS-SB-2022-18223

PATIENT
  Age: 71 Year
  Sex: Female
  Weight: 73 kg

DRUGS (2)
  1. INFLIXIMAB [Suspect]
     Active Substance: INFLIXIMAB
     Indication: Colitis ulcerative
     Route: 042
  2. PINAVERIUM BROMIDE [Concomitant]
     Active Substance: PINAVERIUM BROMIDE
     Indication: Product used for unknown indication
     Route: 065

REACTIONS (5)
  - Blood pressure increased [Unknown]
  - Condition aggravated [Unknown]
  - Weight increased [Unknown]
  - Therapeutic product effect incomplete [Unknown]
  - Off label use [Unknown]
